FAERS Safety Report 11080229 (Version 3)
Quarter: 2015Q3

REPORT INFORMATION
  Report Type: Spontaneous
  Country: JP (occurrence: JP)
  Receive Date: 20150430
  Receipt Date: 20150720
  Transmission Date: 20151125
  Serious: Yes (Hospitalization)
  Sender: FDA-Public Use
  Company Number: JP-GE HEALTHCARE MEDICAL DIAGNOSTICS-OMPQ-PR-1504L-0607

PATIENT
  Age: 75 Year
  Sex: Male
  Weight: 69 kg

DRUGS (19)
  1. ARGATROBAN. [Concomitant]
     Active Substance: ARGATROBAN
     Dates: start: 20140303, end: 20140304
  2. SOLYUGEN F [Concomitant]
     Dates: start: 20140303, end: 20140304
  3. DIPRIVAN [Concomitant]
     Active Substance: PROPOFOL
     Dates: start: 20140303, end: 20140303
  4. PLAVIX [Concomitant]
     Active Substance: CLOPIDOGREL BISULFATE
     Dates: start: 20140213
  5. PLETAAL [Concomitant]
     Active Substance: CILOSTAZOL
     Dates: start: 20140228, end: 20140402
  6. BAYASPIRIN [Concomitant]
     Active Substance: ASPIRIN
     Dates: start: 20140213
  7. NEXIUM [Concomitant]
     Active Substance: ESOMEPRAZOLE MAGNESIUM
     Dates: start: 20140213
  8. ESLAX [Concomitant]
     Active Substance: ROCURONIUM BROMIDE
     Dates: start: 20140303, end: 20140303
  9. PHYSIO 140 [Concomitant]
     Dates: start: 20140303, end: 20140303
  10. NEO SYNESIN [Concomitant]
     Active Substance: PHENYLEPHRINE HYDROCHLORIDE
     Dates: start: 20140303, end: 20140303
  11. OMNIPAQUE [Suspect]
     Active Substance: IOHEXOL
     Indication: THERAPEUTIC PROCEDURE
  12. OMNIPAQUE [Suspect]
     Active Substance: IOHEXOL
     Indication: INTRACRANIAL ANEURYSM
  13. OMNIPAQUE [Suspect]
     Active Substance: IOHEXOL
     Indication: DIAGNOSTIC PROCEDURE
     Route: 013
     Dates: start: 20140303, end: 20140303
  14. ULTIVA [Concomitant]
     Active Substance: REMIFENTANIL HYDROCHLORIDE
     Dates: start: 20140303, end: 20140303
  15. EPHEDRIN [Concomitant]
     Active Substance: EPHEDRINE HYDROCHLORIDE
     Dates: start: 20140303, end: 20140303
  16. NOREPINEPHRINE [Concomitant]
     Active Substance: NOREPINEPHRINE\NOREPINEPHRINE BITARTRATE
     Dates: start: 20140303, end: 20140303
  17. HEPARIN SODIUM. [Concomitant]
     Active Substance: HEPARIN SODIUM
     Dates: start: 20140303, end: 20140303
  18. UNISIA [Concomitant]
     Active Substance: AMLODIPINE BESYLATE\CANDESARTAN CILEXETIL
  19. SOLYUGEN G [Concomitant]
     Dates: start: 20140303, end: 20140303

REACTIONS (3)
  - Paralysis [Recovered/Resolved]
  - Seizure [Recovered/Resolved]
  - Contrast encephalopathy [Recovered/Resolved]

NARRATIVE: CASE EVENT DATE: 20140303
